FAERS Safety Report 9999802 (Version 1)
Quarter: 2014Q1

REPORT INFORMATION
  Report Type: Spontaneous
  Country: US (occurrence: US)
  Receive Date: 20140312
  Receipt Date: 20140312
  Transmission Date: 20141002
  Serious: No
  Sender: FDA-Public Use
  Company Number: US-009507513-1403USA005257

PATIENT
  Sex: Female
  Weight: 104.31 kg

DRUGS (2)
  1. NUVARING [Suspect]
     Indication: CONTRACEPTION
     Dosage: UNK
     Route: 067
     Dates: start: 201004, end: 201007
  2. NUVARING [Suspect]
     Dosage: UNK
     Route: 067
     Dates: start: 200805, end: 2009

REACTIONS (1)
  - Maternal exposure before pregnancy [Unknown]
